FAERS Safety Report 7781967-0 (Version None)
Quarter: 2011Q3

REPORT INFORMATION
  Report Type: 
  Country: None (occurrence: None)
  Receive Date: 20110927
  Receipt Date: 20110915
  Transmission Date: 20111222
  Serious: Yes (Hospitalization)
  Sender: FDA-Public Use
  Company Number: PHEH2011US03907

PATIENT
  Sex: Female

DRUGS (2)
  1. TASIGNA [Suspect]
     Indication: CHRONIC MYELOID LEUKAEMIA
     Dosage: 300 MG, BID
     Route: 048
     Dates: start: 20110829, end: 20110909
  2. TASIGNA [Suspect]
     Indication: LYMPHOPROLIFERATIVE DISORDER

REACTIONS (2)
  - CARDIAC DISORDER [None]
  - WHITE BLOOD CELL COUNT INCREASED [None]
